FAERS Safety Report 14305095 (Version 1)
Quarter: 2017Q4

REPORT INFORMATION
  Report Type: Report from Study
  Country: JP (occurrence: JP)
  Receive Date: 20171219
  Receipt Date: 20171219
  Transmission Date: 20180321
  Serious: Yes (Other)
  Sender: FDA-Public Use
  Company Number: JP-OTSUKA-03100-JPN-07-0516

PATIENT
  Age: 89 Year
  Sex: Female

DRUGS (10)
  1. ARIPIPRAZOLE. [Suspect]
     Active Substance: ARIPIPRAZOLE
     Dosage: 3 MG, QD
     Route: 048
     Dates: start: 20071021, end: 20071027
  2. NEULEPTIL [Concomitant]
     Active Substance: PERICIAZINE
     Dosage: 25 MG, QD
     Route: 048
     Dates: end: 20071027
  3. AKINETON [Concomitant]
     Active Substance: BIPERIDEN HYDROCHLORIDE
     Route: 048
  4. MAGESIUM OXIDE [Concomitant]
     Route: 048
  5. PURSENNID [Concomitant]
     Active Substance: SENNOSIDES A AND B
     Route: 048
  6. ARIPIPRAZOLE. [Suspect]
     Active Substance: ARIPIPRAZOLE
     Dosage: 6 MG, QD
     Route: 048
     Dates: start: 20071028, end: 20071028
  7. SENNA [Concomitant]
     Active Substance: SENNA LEAF\SENNOSIDES\SENNOSIDES A AND B
     Indication: PROPHYLAXIS
     Dosage: 12 MG, UNK
     Route: 048
  8. MAGNESIUMOXIDE [Concomitant]
     Active Substance: MAGNESIUM OXIDE
     Indication: PROPHYLAXIS
     Dosage: 2 G, UNK
     Route: 048
  9. NEULEPTIL [Concomitant]
     Active Substance: PERICIAZINE
     Dosage: 10 MG, QD
     Route: 048
     Dates: start: 20071028, end: 20071028
  10. NEULEPTIL [Concomitant]
     Active Substance: PERICIAZINE
     Route: 048
     Dates: start: 20071029

REACTIONS (1)
  - Delusion [Recovered/Resolved]

NARRATIVE: CASE EVENT DATE: 20071028
